FAERS Safety Report 6912351-7 (Version None)
Quarter: 2010Q3

REPORT INFORMATION
  Report Type: 
  Country: None (occurrence: None)
  Receive Date: 20100806
  Receipt Date: 20100804
  Transmission Date: 20110219
  Serious: Yes (Other)
  Sender: FDA-Public Use
  Company Number: US-MERCK-0805USA00917

PATIENT
  Age: 76 Year
  Sex: Female

DRUGS (16)
  1. FOSAMAX [Suspect]
     Indication: OSTEOPOROSIS PROPHYLAXIS
     Route: 048
     Dates: start: 20030101, end: 20070301
  2. FOSAMAX [Suspect]
     Route: 048
     Dates: start: 20020101
  3. FOSAMAX [Suspect]
     Indication: OSTEOPENIA
     Route: 048
     Dates: start: 20030101, end: 20070301
  4. FOSAMAX [Suspect]
     Route: 048
     Dates: start: 20020101
  5. [THERAPY UNSPECIFIED] [Concomitant]
     Indication: HYPERTENSION
     Route: 065
     Dates: start: 19800101
  6. FOSAMAX PLUS D [Suspect]
     Indication: OSTEOPOROSIS PROPHYLAXIS
     Route: 048
  7. [THERAPY UNSPECIFIED] [Concomitant]
     Indication: BLOOD CHOLESTEROL INCREASED
     Route: 065
     Dates: start: 19900101
  8. PLAVIX [Concomitant]
     Indication: THROMBOSIS PROPHYLAXIS
     Route: 065
     Dates: start: 20020101
  9. TOPROL-XL [Concomitant]
     Route: 065
     Dates: start: 20020101
  10. ALBUTEROL [Concomitant]
     Indication: ASTHMA
     Route: 065
     Dates: start: 20021201
  11. ALBUTEROL [Concomitant]
     Indication: CHRONIC OBSTRUCTIVE PULMONARY DISEASE
     Route: 065
     Dates: start: 20021201
  12. LESCOL [Concomitant]
     Indication: BLOOD CHOLESTEROL INCREASED
     Route: 065
     Dates: start: 20020101, end: 20060101
  13. DIOVAN [Concomitant]
     Indication: HYPERTENSION
     Route: 065
     Dates: start: 20020101
  14. ADVAIR DISKUS 100/50 [Concomitant]
     Indication: ASTHMA
     Route: 065
     Dates: start: 20030101
  15. ADVAIR DISKUS 100/50 [Concomitant]
     Indication: CHRONIC OBSTRUCTIVE PULMONARY DISEASE
     Route: 065
     Dates: start: 20030101
  16. HYDROCHLOROTHIAZIDE [Concomitant]
     Indication: HYPERTENSION
     Route: 065
     Dates: start: 20040101

REACTIONS (33)
  - ARTHRITIS [None]
  - BRONCHOSPASM [None]
  - CHRONIC OBSTRUCTIVE PULMONARY DISEASE [None]
  - COUGH [None]
  - DENTAL CARIES [None]
  - DYSPEPSIA [None]
  - DYSPNOEA [None]
  - FEELING OF BODY TEMPERATURE CHANGE [None]
  - GASTRITIS [None]
  - GASTROOESOPHAGEAL REFLUX DISEASE [None]
  - HUMERUS FRACTURE [None]
  - HYPERKERATOSIS [None]
  - IMPAIRED HEALING [None]
  - LICHEN PLANUS [None]
  - NOCTURIA [None]
  - ORAL HERPES [None]
  - ORAL INFECTION [None]
  - OROPHARYNGEAL CANDIDIASIS [None]
  - OROPHARYNGEAL PAIN [None]
  - OSTEONECROSIS OF JAW [None]
  - PAIN [None]
  - PAIN IN EXTREMITY [None]
  - PAIN IN JAW [None]
  - PNEUMONIA [None]
  - POLLAKIURIA [None]
  - PULPITIS DENTAL [None]
  - RADICULOPATHY [None]
  - SINUSITIS [None]
  - SKIN IRRITATION [None]
  - SKIN LESION [None]
  - SNEEZING [None]
  - THYROID DISORDER [None]
  - UPPER RESPIRATORY TRACT INFECTION [None]
